FAERS Safety Report 19065715 (Version 7)
Quarter: 2021Q2

REPORT INFORMATION
  Report Type: Report from Study
  Country: CA (occurrence: CA)
  Receive Date: 20210327
  Receipt Date: 20210619
  Transmission Date: 20210717
  Serious: Yes (Hospitalization, Other)
  Sender: FDA-Public Use
  Company Number: CA-TAKEDA-2020TUS050677

PATIENT
  Age: 64 Year
  Sex: Female

DRUGS (2)
  1. CUVITRU [Suspect]
     Active Substance: HUMAN IMMUNOGLOBULIN G
     Indication: PRIMARY IMMUNODEFICIENCY SYNDROME
     Dosage: 8.00 GRAM, 1/WEEK
     Route: 065
     Dates: start: 20201110
  2. CUVITRU [Suspect]
     Active Substance: HUMAN IMMUNOGLOBULIN G
     Dosage: 8 GRAM, 1/WEEK
     Route: 065
     Dates: start: 20201110

REACTIONS (8)
  - Malaise [Unknown]
  - Inappropriate schedule of product administration [Unknown]
  - Infusion site erythema [Unknown]
  - Cerebrovascular accident [Recovering/Resolving]
  - Infection [Recovered/Resolved]
  - Kidney infection [Recovered/Resolved]
  - Tooth extraction [Not Recovered/Not Resolved]
  - Pain [Not Recovered/Not Resolved]

NARRATIVE: CASE EVENT DATE: 20201110
